FAERS Safety Report 17308738 (Version 1)
Quarter: 2020Q1

REPORT INFORMATION
  Report Type: Report from Study
  Country: US (occurrence: US)
  Receive Date: 20200123
  Receipt Date: 20200123
  Transmission Date: 20200409
  Serious: Yes (Disabling, Other)
  Sender: FDA-Public Use
  Company Number: US-SA-2016SA104755

PATIENT
  Age: 39 Year
  Sex: Male

DRUGS (3)
  1. AMPYRA [Concomitant]
     Active Substance: DALFAMPRIDINE
     Dosage: UNK
     Route: 065
  2. PROVIGIL [Concomitant]
     Active Substance: MODAFINIL
     Indication: FATIGUE
     Dosage: UNK
     Route: 065
  3. ALEMTUZUMAB [Suspect]
     Active Substance: ALEMTUZUMAB
     Indication: MULTIPLE SCLEROSIS
     Dosage: 12 MG,QD
     Route: 041
     Dates: start: 20160515, end: 20160519

REACTIONS (24)
  - Sperm concentration decreased [Recovered/Resolved]
  - Muscle spasticity [Not Recovered/Not Resolved]
  - Hypoaesthesia [Not Recovered/Not Resolved]
  - Asthenia [Not Recovered/Not Resolved]
  - Condition aggravated [Not Recovered/Not Resolved]
  - Malaise [Recovered/Resolved]
  - Frustration tolerance decreased [Not Recovered/Not Resolved]
  - Erectile dysfunction [Unknown]
  - Aphasia [Recovered/Resolved]
  - Limb discomfort [Not Recovered/Not Resolved]
  - Multiple sclerosis relapse [Recovered/Resolved]
  - Dysphagia [Not Recovered/Not Resolved]
  - Feeling cold [Not Recovered/Not Resolved]
  - Nervous system disorder [Unknown]
  - Memory impairment [Not Recovered/Not Resolved]
  - Gait disturbance [Unknown]
  - Apathy [Recovered/Resolved]
  - Anxiety [Unknown]
  - Fatigue [Recovered/Resolved]
  - Acne [Recovering/Resolving]
  - Infertility male [Not Recovered/Not Resolved]
  - Temperature intolerance [Not Recovered/Not Resolved]
  - General physical health deterioration [Recovered/Resolved]
  - Speech disorder [Not Recovered/Not Resolved]

NARRATIVE: CASE EVENT DATE: 2016
